FAERS Safety Report 8047001-2 (Version None)
Quarter: 2012Q1

REPORT INFORMATION
  Report Type: 
  Country: None (occurrence: None)
  Receive Date: 20120116
  Receipt Date: 20120111
  Transmission Date: 20120608
  Serious: Yes (Death, Other)
  Sender: FDA-Public Use
  Company Number: JP-JNJFOC-20111210071

PATIENT
  Sex: Female

DRUGS (3)
  1. DOXORUBICIN HCL [Suspect]
     Route: 042
  2. DOXORUBICIN HCL [Suspect]
     Indication: PRODUCT USED FOR UNKNOWN INDICATION
     Route: 042
     Dates: start: 20110930, end: 20110930
  3. DOXORUBICIN HCL [Suspect]
     Route: 042
     Dates: start: 20111205, end: 20111205

REACTIONS (2)
  - RENAL FAILURE [None]
  - HEPATITIS FULMINANT [None]
